FAERS Safety Report 16744696 (Version 1)
Quarter: 2019Q3

REPORT INFORMATION
  Report Type: Report from Study
  Country: BE (occurrence: BE)
  Receive Date: 20190827
  Receipt Date: 20190827
  Transmission Date: 20191005
  Serious: Yes (Hospitalization)
  Sender: FDA-Public Use
  Company Number: BE-MYLANLABS-2019M1078625

PATIENT
  Age: 25 Year
  Sex: Female
  Weight: 71 kg

DRUGS (15)
  1. TRAZODONE [Suspect]
     Active Substance: TRAZODONE HYDROCHLORIDE
     Indication: PRODUCT USED FOR UNKNOWN INDICATION
     Dosage: 1 DF, QD
     Route: 065
  2. ALEMTUZUMAB [Suspect]
     Active Substance: ALEMTUZUMAB
     Dosage: 12 MG, QD
     Route: 041
     Dates: start: 20180903
  3. PARACETAMOL B.BRAUN [Suspect]
     Active Substance: ACETAMINOPHEN
     Dosage: 2 G, QD
     Route: 042
     Dates: start: 20180904, end: 20180904
  4. DAFALGAN [Suspect]
     Active Substance: ACETAMINOPHEN
     Dosage: 1 UNK
     Route: 048
     Dates: start: 20180906, end: 20180906
  5. PARACETAMOL B.BRAUN [Suspect]
     Active Substance: ACETAMINOPHEN
     Dosage: 1 UNK
     Route: 042
     Dates: start: 20180906, end: 20180906
  6. DAFALGAN [Suspect]
     Active Substance: ACETAMINOPHEN
     Dosage: 2 G, QD
     Route: 048
     Dates: start: 20180905, end: 20180905
  7. VOLTAREN [Suspect]
     Active Substance: DICLOFENAC SODIUM
     Dosage: 150 UNK
     Route: 042
     Dates: start: 20180906, end: 20180906
  8. VOLTAREN [Suspect]
     Active Substance: DICLOFENAC SODIUM
     Dosage: 75 MG
     Route: 042
     Dates: start: 20180905, end: 20180905
  9. BRUFEN [Suspect]
     Active Substance: IBUPROFEN
     Indication: PAIN
     Dosage: 600 MG
     Route: 065
  10. PARACETAMOL B.BRAUN [Suspect]
     Active Substance: ACETAMINOPHEN
     Indication: HEADACHE
     Dosage: 1 G
     Route: 042
     Dates: start: 20180903, end: 20180903
  11. ALEMTUZUMAB [Suspect]
     Active Substance: ALEMTUZUMAB
     Indication: MULTIPLE SCLEROSIS RELAPSE
     Dosage: 12 MG, QD
     Route: 041
     Dates: start: 20170828
  12. TRADONAL [Suspect]
     Active Substance: TRAMADOL HYDROCHLORIDE
     Indication: PRODUCT USED FOR UNKNOWN INDICATION
     Dosage: 1 DF, BID
     Route: 065
  13. VOLTAREN [Suspect]
     Active Substance: DICLOFENAC SODIUM
     Indication: PRODUCT USED FOR UNKNOWN INDICATION
     Dosage: 75 UNK
     Route: 042
     Dates: start: 20180907, end: 20180907
  14. DAPHNE /00160501/ [Suspect]
     Active Substance: LYNESTRENOL
     Indication: PRODUCT USED FOR UNKNOWN INDICATION
     Dosage: 1 DF, QD
     Route: 065
  15. DAFALGAN [Suspect]
     Active Substance: ACETAMINOPHEN
     Indication: HEADACHE
     Dosage: 1 G
     Route: 048
     Dates: start: 20180903, end: 20180903

REACTIONS (6)
  - Suicide attempt [Recovered/Resolved]
  - Hypotension [Recovered/Resolved]
  - Tachycardia [Recovered/Resolved]
  - Nausea [Recovered/Resolved]
  - Pyrexia [Recovered/Resolved]
  - Headache [Recovered/Resolved]

NARRATIVE: CASE EVENT DATE: 20180903
